FAERS Safety Report 7819102-2 (Version None)
Quarter: 2011Q4

REPORT INFORMATION
  Report Type: 
  Country: None (occurrence: None)
  Receive Date: 20111018
  Receipt Date: 20111007
  Transmission Date: 20120403
  Serious: Yes (Hospitalization)
  Sender: FDA-Public Use
  Company Number: US-US-EMD SERONO, INC.-7088672

PATIENT
  Sex: Female

DRUGS (3)
  1. REBIF [Suspect]
     Route: 058
     Dates: start: 20111001
  2. REBIF [Suspect]
     Indication: MULTIPLE SCLEROSIS
     Route: 058
     Dates: start: 20020923, end: 20110501
  3. NAPROXEN [Concomitant]
     Indication: PREMEDICATION

REACTIONS (5)
  - ENDOMETRIAL HYPERPLASIA [None]
  - HEADACHE [None]
  - INJECTION SITE MASS [None]
  - SKIN TIGHTNESS [None]
  - INJECTION SITE ERYTHEMA [None]
